FAERS Safety Report 4846748-6 (Version None)
Quarter: 2005Q4

REPORT INFORMATION
  Report Type: 
  Country: None (occurrence: None)
  Receive Date: 20051206
  Receipt Date: 20051005
  Transmission Date: 20060501
  Serious: Yes (Hospitalization)
  Sender: FDA-Public Use
  Company Number: US-MERCK-0510USA04224

PATIENT
  Age: 27 Year
  Sex: Female
  Weight: 76 kg

DRUGS (5)
  1. VIOXX [Suspect]
     Indication: PAIN IN EXTREMITY
     Route: 048
     Dates: start: 20030101, end: 20040701
  2. LASIX [Concomitant]
     Route: 048
  3. K-DUR 10 [Concomitant]
     Route: 048
  4. VENTOLIN [Concomitant]
     Route: 048
  5. ALLEGRA [Concomitant]
     Route: 048

REACTIONS (4)
  - BONE NEOPLASM [None]
  - CARDIAC FAILURE CONGESTIVE [None]
  - CARDIOVASCULAR DISORDER [None]
  - PAIN IN EXTREMITY [None]
